FAERS Safety Report 6562017-0 (Version None)
Quarter: 2010Q1

REPORT INFORMATION
  Report Type: 
  Country: None (occurrence: None)
  Receive Date: 20100130
  Receipt Date: 20091230
  Transmission Date: 20100710
  Serious: No
  Sender: FDA-Public Use
  Company Number: PR-ABBOTT-09P-131-0612541-00

PATIENT
  Sex: Female
  Weight: 67.192 kg

DRUGS (8)
  1. HUMIRA [Suspect]
     Indication: RHEUMATOID ARTHRITIS
     Route: 058
     Dates: start: 20090101
  2. GLIPIZIDE [Concomitant]
     Indication: DIABETES MELLITUS
     Route: 048
  3. METFORMIN [Concomitant]
     Indication: DIABETES MELLITUS
     Route: 048
  4. ATENOLOL [Concomitant]
     Indication: HYPERTENSION
     Route: 048
  5. ORANGE BLOSSOM WATER [Concomitant]
     Indication: NERVOUSNESS
     Route: 048
  6. ZANTAC [Concomitant]
     Indication: GASTRITIS
     Route: 048
  7. SULINDAC [Concomitant]
     Indication: PAIN
     Route: 048
  8. NAPROXEN [Concomitant]
     Indication: PAIN
     Route: 048

REACTIONS (3)
  - ARTHRALGIA [None]
  - LOCAL SWELLING [None]
  - SKIN BURNING SENSATION [None]
